FAERS Safety Report 23122532 (Version 9)
Quarter: 2024Q1

REPORT INFORMATION
  Report Type: Spontaneous
  Country: US (occurrence: US)
  Receive Date: 20231030
  Receipt Date: 20240124
  Transmission Date: 20240410
  Serious: No
  Sender: FDA-Public Use
  Company Number: US-BIOGEN-2023BI01233001

PATIENT
  Sex: Female

DRUGS (2)
  1. TYSABRI [Suspect]
     Active Substance: NATALIZUMAB
     Indication: Multiple sclerosis
     Route: 050
     Dates: start: 20230601, end: 20230916
  2. TYSABRI [Suspect]
     Active Substance: NATALIZUMAB
     Route: 050
     Dates: start: 20231117

REACTIONS (11)
  - Inappropriate schedule of product administration [Unknown]
  - Infusion site pain [Unknown]
  - Cognitive disorder [Unknown]
  - Poor quality sleep [Unknown]
  - Infection [Unknown]
  - Stress [Unknown]
  - Cyst [Unknown]
  - Peripheral nerve injury [Unknown]
  - Hypersensitivity [Unknown]
  - Fatigue [Unknown]
  - Chest discomfort [Recovered/Resolved]

NARRATIVE: CASE EVENT DATE: 20230101
